FAERS Safety Report 12805683 (Version 1)
Quarter: 2016Q4

REPORT INFORMATION
  Report Type: Spontaneous
  Country: US (occurrence: US)
  Receive Date: 20161003
  Receipt Date: 20161003
  Transmission Date: 20170207
  Serious: Yes (Other)
  Sender: FDA-Public Use
  Company Number: None

PATIENT
  Age: 60 Year
  Sex: Female
  Weight: 85.5 kg

DRUGS (8)
  1. DICLOFENAC [Suspect]
     Active Substance: DICLOFENAC
     Indication: MYALGIA
     Dosage: ?          QUANTITY:1 CAPSULE(S);?
     Route: 048
     Dates: start: 20160704, end: 20160709
  2. XARELTO [Concomitant]
     Active Substance: RIVAROXABAN
  3. COQ10 [Concomitant]
     Active Substance: UBIDECARENONE
  4. GABAPENTIN. [Concomitant]
     Active Substance: GABAPENTIN
  5. PREDNISONE. [Concomitant]
     Active Substance: PREDNISONE
  6. GLUTATHIONE [Concomitant]
     Active Substance: GLUTATHIONE
  7. L CARNITINE [Concomitant]
     Active Substance: LEVOCARNITINE
  8. B2 [Concomitant]

REACTIONS (2)
  - Dehydration [None]
  - Haemorrhage [None]

NARRATIVE: CASE EVENT DATE: 20160709
